FAERS Safety Report 7288606 (Version 2)
Quarter: 2014Q4

REPORT INFORMATION
  Report Type: Report from Study
  Country: CA (occurrence: CA)
  Receive Date: 20100222
  Receipt Date: 20141231
  Transmission Date: 20150529
  Serious: Yes (Other)
  Sender: FDA-Public Use
  Company Number: CA-ROCHE-678679

PATIENT
  Age: 53 Year
  Sex: Female

DRUGS (9)
  1. ENALAPRIL [Suspect]
     Active Substance: ENALAPRIL
     Indication: PRODUCT USED FOR UNKNOWN INDICATION
     Dosage: DRUG NAME: VASOTEC.
     Route: 065
  2. HYDROCHLOROTHIAZIDE. [Concomitant]
     Active Substance: HYDROCHLOROTHIAZIDE
     Route: 065
     Dates: start: 200801, end: 20091217
  3. ENALAPRIL [Concomitant]
     Active Substance: ENALAPRIL
     Dosage: DRUG NAME APOENALAPRIL
     Route: 065
     Dates: start: 20081124, end: 20091217
  4. NOVO-METOPROL [Concomitant]
     Route: 065
  5. DIOVAN [Suspect]
     Active Substance: VALSARTAN
     Indication: PRODUCT USED FOR UNKNOWN INDICATION
     Route: 065
     Dates: start: 20080717, end: 20091217
  6. EFFEXOR XR [Concomitant]
     Active Substance: VENLAFAXINE HYDROCHLORIDE
     Route: 065
  7. ADALAT CC [Concomitant]
     Active Substance: NIFEDIPINE
     Route: 065
  8. BEVACIZUMAB [Suspect]
     Active Substance: BEVACIZUMAB
     Indication: BREAST CANCER METASTATIC
     Dosage: LAST DOSE PRIOR TO SAE ON 2 NOV 2009, DOSE FORM : VIAL, ?THERAPY PERMANENTLY DISCONTINUED.
     Route: 042
     Dates: start: 20070111, end: 20091102
  9. GABAPENTIN. [Concomitant]
     Active Substance: GABAPENTIN
     Dosage: DRUG NAME NERO GABAPENTIN.
     Route: 065
     Dates: start: 2001, end: 20090917

REACTIONS (1)
  - Blood creatinine increased [Recovered/Resolved]

NARRATIVE: CASE EVENT DATE: 20091021
